FAERS Safety Report 14904308 (Version 1)
Quarter: 2018Q2

REPORT INFORMATION
  Report Type: Spontaneous
  Country: DE (occurrence: DE)
  Receive Date: 20180516
  Receipt Date: 20180516
  Transmission Date: 20180711
  Serious: Yes (Other)
  Sender: FDA-Public Use
  Company Number: DE-AUROBINDO-AUR-APL-2018-025818

PATIENT
  Sex: Female

DRUGS (4)
  1. LIDOCAINE. [Suspect]
     Active Substance: LIDOCAINE
     Indication: RADICULOPATHY
     Dosage: UNK
     Route: 061
  2. TAPENTADOL [Suspect]
     Active Substance: TAPENTADOL
     Indication: RADICULOPATHY
     Dosage: 300 MILLIGRAM
     Route: 065
  3. DULOXETINE. [Suspect]
     Active Substance: DULOXETINE
     Indication: RADICULOPATHY
     Dosage: UNK
     Route: 065
  4. NALOXONE W/TILIDINE [Suspect]
     Active Substance: NALOXONE HYDROCHLORIDE\TILIDINE HYDROCHLORIDE
     Indication: RADICULOPATHY
     Dosage: UNK
     Route: 065

REACTIONS (3)
  - Drug ineffective for unapproved indication [Unknown]
  - Cognitive disorder [Unknown]
  - Drug effect incomplete [Unknown]
